FAERS Safety Report 17087431 (Version 1)
Quarter: 2019Q4

REPORT INFORMATION
  Report Type: Spontaneous
  Country: GB (occurrence: GB)
  Receive Date: 20191128
  Receipt Date: 20191128
  Transmission Date: 20200122
  Serious: Yes (Other)
  Sender: FDA-Public Use
  Company Number: GB-TEVA-2019-GB-1141723

PATIENT
  Age: 62 Year
  Sex: Female
  Weight: 79 kg

DRUGS (15)
  1. E45 [Concomitant]
     Active Substance: LANOLIN\LIGHT MINERAL OIL\PARAFFIN
     Dosage: APPLY
     Dates: start: 20180426
  2. DOXYCYCLINE. [Suspect]
     Active Substance: DOXYCYCLINE
     Dosage: 100 MG
     Dates: start: 20181129
  3. CALCIUM CARBONATE. [Concomitant]
     Active Substance: CALCIUM CARBONATE
     Dosage: 2 DOSAGE FORMS
     Dates: start: 20180309
  4. DOXYCYCLINE. [Concomitant]
     Active Substance: DOXYCYCLINE
     Dosage: TWO NOW THEN ONE DAILY
     Dates: start: 20181123
  5. CASSIA [Concomitant]
     Dosage: TAKE 1 OR 2 AT NIGHT
     Dates: start: 20170801, end: 20181011
  6. AMOXICILLIN. [Concomitant]
     Active Substance: AMOXICILLIN
     Dosage: 3 DOSAGE FORMS
     Dates: start: 20181011, end: 20181016
  7. FUROSEMIDE. [Concomitant]
     Active Substance: FUROSEMIDE
     Dosage: EACH MORNING. 1 DOSAGE FORMS
     Dates: start: 20180731
  8. FOSTAIR [Concomitant]
     Active Substance: BECLOMETHASONE\FORMOTEROL
     Dosage: PUFFS. 4 DOSAGE FORMS
     Dates: start: 20180702
  9. IVABRADINE [Concomitant]
     Active Substance: IVABRADINE
     Dosage: 2 DOSAGE FORMS
     Dates: start: 20180702
  10. TIOTROPIUM [Concomitant]
     Active Substance: TIOTROPIUM
     Dosage: 1 DOSAGE FORMS
     Route: 055
     Dates: start: 20180719
  11. RAMIPRIL. [Concomitant]
     Active Substance: RAMIPRIL
     Dosage: 1 DOSAGE FORMS
     Dates: start: 20180731
  12. SALBUTAMOL [Concomitant]
     Active Substance: ALBUTEROL
     Dosage: 3-4 TIMES/DAY. 1 DOSAGE FORMS
     Route: 055
     Dates: start: 20180406
  13. PREDNISOLONE. [Concomitant]
     Active Substance: PREDNISOLONE
     Dosage: IF FLARES UP TAKE 20MG. 10 MG
     Dates: start: 20180530
  14. ESTRADIOL. [Concomitant]
     Active Substance: ESTRADIOL
     Dosage: 1 DOSAGE FORM
     Dates: start: 20180828
  15. OMEPRAZOLE. [Concomitant]
     Active Substance: OMEPRAZOLE
     Dosage: 2 DOSAGE FORMS
     Dates: start: 20171002

REACTIONS (3)
  - Malaise [Unknown]
  - Headache [Recovered/Resolved]
  - Syncope [Unknown]

NARRATIVE: CASE EVENT DATE: 20181129
